FAERS Safety Report 5168269-6 (Version None)
Quarter: 2006Q4

REPORT INFORMATION
  Report Type: 
  Country: None (occurrence: None)
  Receive Date: 20061208
  Receipt Date: 20061129
  Transmission Date: 20070319
  Serious: Yes (Death)
  Sender: FDA-Public Use
  Company Number: US-BRISTOL-MYERS SQUIBB COMPANY-13599485

PATIENT
  Age: 65 Year

DRUGS (3)
  1. METFORMIN HCL [Suspect]
  2. ATENOLOL [Suspect]
  3. SULFONYLUREA [Suspect]

REACTIONS (1)
  - COMPLETED SUICIDE [None]
